FAERS Safety Report 8164496-4 (Version None)
Quarter: 2012Q1

REPORT INFORMATION
  Report Type: 
  Country: None (occurrence: None)
  Receive Date: 20120224
  Receipt Date: 20120222
  Transmission Date: 20120608
  Serious: Yes (Other)
  Sender: FDA-Public Use
  Company Number: US-VERTEX PHARMACEUTICALS INC.-AE-2012-002136

PATIENT
  Sex: Male
  Weight: 97.61 kg

DRUGS (8)
  1. RESTOSIS [Concomitant]
  2. IBUPROFEN [Concomitant]
  3. SERTRALINE HYDROCHLORIDE [Concomitant]
  4. PEGINTERFERON [Concomitant]
     Indication: HEPATITIS C
     Route: 058
     Dates: start: 20120209
  5. ACETAMINOPHEN [Concomitant]
  6. PROAIR HFA [Concomitant]
  7. INCIVEK [Suspect]
     Indication: HEPATITIS C
     Route: 048
     Dates: start: 20120210
  8. RIBAVIRIN [Concomitant]
     Indication: HEPATITIS C
     Route: 048
     Dates: start: 20120210

REACTIONS (3)
  - NAUSEA [None]
  - RASH GENERALISED [None]
  - DIARRHOEA [None]
